FAERS Safety Report 15208821 (Version 1)
Quarter: 2018Q3

REPORT INFORMATION
  Report Type: Spontaneous
  Country: US (occurrence: US)
  Receive Date: 20180727
  Receipt Date: 20180727
  Transmission Date: 20181010
  Serious: Yes (Other)
  Sender: FDA-Public Use
  Company Number: US-VALIDUS PHARMACEUTICALS LLC-US-2018VAL000861

PATIENT
  Age: 70 Year
  Sex: Male
  Weight: 141.2 kg

DRUGS (7)
  1. BUMEX [Suspect]
     Active Substance: BUMETANIDE
     Dosage: UNK
     Dates: start: 20180322, end: 20180323
  2. METFORMIN [Suspect]
     Active Substance: METFORMIN HYDROCHLORIDE
     Indication: TYPE 2 DIABETES MELLITUS
     Dosage: 1000 MG, QD
     Route: 048
     Dates: start: 20180115, end: 20180323
  3. ALDACTONE [Concomitant]
     Active Substance: SPIRONOLACTONE
     Indication: CARDIAC FAILURE CONGESTIVE
     Dosage: 12.5 MG, QD
     Route: 048
     Dates: start: 1998
  4. COREG [Concomitant]
     Active Substance: CARVEDILOL
     Indication: CORONARY ARTERY DISEASE
     Dosage: 50 MG, QD
     Route: 048
     Dates: start: 1998
  5. BUMETANIDE. [Concomitant]
     Active Substance: BUMETANIDE
     Indication: CARDIAC FAILURE CONGESTIVE
     Dosage: 2 MG, QD
     Route: 048
     Dates: start: 1998, end: 20180315
  6. BUMEX [Suspect]
     Active Substance: BUMETANIDE
     Indication: CARDIAC FAILURE CONGESTIVE
     Dosage: 4 MG, QD
     Route: 048
     Dates: start: 20180316
  7. LOSARTAN. [Suspect]
     Active Substance: LOSARTAN
     Indication: HYPERTENSION
     Dosage: 50 MG, QD
     Route: 048
     Dates: start: 1998, end: 20180323

REACTIONS (2)
  - Glomerular filtration rate decreased [Recovered/Resolved]
  - Cardiac failure congestive [Not Recovered/Not Resolved]

NARRATIVE: CASE EVENT DATE: 20180322
